FAERS Safety Report 6716213-X (Version None)
Quarter: 2010Q2

REPORT INFORMATION
  Report Type: 
  Country: None (occurrence: None)
  Receive Date: 20100507
  Receipt Date: 20100423
  Transmission Date: 20101027
  Serious: Yes (Hospitalization)
  Sender: FDA-Public Use
  Company Number: US-JNJFOC-20091002668

PATIENT
  Sex: Male
  Weight: 63.96 kg

DRUGS (18)
  1. BLINDED; ABIRATERONE ACETATE [Suspect]
     Indication: PROSTATE CANCER METASTATIC
     Route: 048
  2. BLINDED; ABIRATERONE ACETATE [Suspect]
     Route: 048
  3. PLACEBO [Suspect]
     Indication: PROSTATE CANCER METASTATIC
     Route: 048
  4. PLACEBO [Suspect]
     Route: 048
  5. PREDNISONE TAB [Suspect]
     Indication: PROSTATE CANCER METASTATIC
     Route: 048
  6. PREDNISONE TAB [Suspect]
     Route: 048
  7. PREDNISONE TAB [Suspect]
     Route: 048
  8. PREDNISONE TAB [Suspect]
     Route: 048
  9. TYLENOL W/ CODEINE NO. 3 [Suspect]
     Indication: ARTHRALGIA
     Route: 048
  10. FERROUS SULFATE TAB [Concomitant]
     Indication: ANAEMIA
     Route: 065
  11. LABETALOL HCL [Concomitant]
     Route: 042
  12. CIPROFLOXACIN [Concomitant]
     Indication: ERYTHEMA
     Route: 048
  13. CIPROFLOXACIN [Concomitant]
     Indication: SINUSITIS
     Route: 048
  14. CIPROFLOXACIN [Concomitant]
     Indication: EYE INFECTION
     Route: 048
  15. LIPITOR [Concomitant]
     Indication: HYPERCHOLESTEROLAEMIA
     Route: 048
  16. OMEPRAZOLE [Concomitant]
     Indication: GASTROOESOPHAGEAL REFLUX DISEASE
     Route: 048
  17. PROCRIT [Concomitant]
     Indication: ANAEMIA
     Route: 058
  18. CALCIUM [Concomitant]
     Indication: HYPOCALCAEMIA
     Route: 048

REACTIONS (1)
  - MENTAL STATUS CHANGES [None]
